FAERS Safety Report 8975733 (Version 1)
Quarter: 2012Q4

REPORT INFORMATION
  Report Type: 
  Country: US (occurrence: US)
  Receive Date: 20121219
  Receipt Date: 20121219
  Transmission Date: 20130627
  Serious: No
  Sender: FDA-Public Use
  Company Number: US-PFIZER INC-2012315851

PATIENT
  Age: 86 Year
  Sex: Female
  Weight: 40.82 kg

DRUGS (4)
  1. CENTRUM SILVER [Suspect]
     Indication: VITAMIN SUPPLEMENTATION
     Dosage: 1 DF, daily
     Route: 048
  2. NORVASC [Interacting]
     Indication: BLOOD PRESSURE ABNORMAL
     Dosage: 2.5 mg, daily
  3. LEVOXYL [Interacting]
     Indication: THYROID DISORDER
     Dosage: 75 ug, daily
  4. CITRACAL [Interacting]
     Indication: CALCIUM SUPPLEMENTATION
     Dosage: 1 DF, daily
     Route: 048

REACTIONS (2)
  - Drug interaction [Unknown]
  - Rash [Not Recovered/Not Resolved]
